FAERS Safety Report 24245927 (Version 1)
Quarter: 2024Q3

REPORT INFORMATION
  Report Type: Spontaneous
  Country: US (occurrence: None)
  Receive Date: 20240824
  Receipt Date: 20240824
  Transmission Date: 20241016
  Serious: No
  Sender: ASTRAZENECA
  Company Number: 2024A189123

PATIENT
  Sex: Female

DRUGS (1)
  1. FARXIGA [Suspect]
     Active Substance: DAPAGLIFLOZIN PROPANEDIOL
     Route: 048

REACTIONS (7)
  - Female reproductive tract disorder [Unknown]
  - Vaginal ulceration [Unknown]
  - Condition aggravated [Unknown]
  - Urticaria [Unknown]
  - Rash [Unknown]
  - Diarrhoea [Unknown]
  - Intentional product misuse [Unknown]
